FAERS Safety Report 9931869 (Version 1)
Quarter: 2014Q1

REPORT INFORMATION
  Report Type: Spontaneous
  Country: US (occurrence: None)
  Receive Date: 20140226
  Receipt Date: 20140226
  Transmission Date: 20141002
  Serious: No
  Sender: FDA-Public Use
  Company Number: SYM-2013-01900

PATIENT
  Sex: Female

DRUGS (3)
  1. CARDIZEM CD [Suspect]
     Indication: PRODUCT USED FOR UNKNOWN INDICATION
     Dosage: 1 IN 1 D
     Route: 048
  2. COREG CR (CARVEDILOL) (CARVEDILOL) [Concomitant]
  3. LOPRESSOR (METOPROLOL TARTRATE) (50 MILLIGRAM) (METOPROLOL TARTRATE) [Concomitant]

REACTIONS (5)
  - Dry throat [None]
  - Chest pain [None]
  - Dyspnoea [None]
  - Middle insomnia [None]
  - Weight increased [None]
